FAERS Safety Report 9477048 (Version 1)
Quarter: 2013Q3

REPORT INFORMATION
  Report Type: Spontaneous
  Country: US (occurrence: US)
  Receive Date: 20130826
  Receipt Date: 20130826
  Transmission Date: 20140515
  Serious: Yes (Hospitalization, Other)
  Sender: FDA-Public Use
  Company Number: US-BAYER-2013-102516

PATIENT
  Age: 29 Year
  Sex: Female

DRUGS (18)
  1. YAZ [Suspect]
     Indication: POLYCYSTIC OVARIES
  2. NICOTROL [Concomitant]
  3. DIAZEPAM [Concomitant]
  4. ACETAMINOPHEN W/HYDROCODONE [Concomitant]
  5. SENNALAX-S [Concomitant]
  6. CYCLOBENZAPRINE [Concomitant]
  7. PROCHLORPERAZINE [Concomitant]
  8. TRAMADOL [Concomitant]
  9. PRILOSEC [Concomitant]
  10. DICLOFENAC [Concomitant]
  11. VICODIN [Concomitant]
  12. IBUPROFEN [Concomitant]
  13. PERCOCET [Concomitant]
     Indication: PAIN
  14. CODEINE [Concomitant]
  15. VALIUM [Concomitant]
  16. MICRONOR [Concomitant]
  17. NORETHINDRONE [Concomitant]
  18. DICLOFENAC SODIUM [Concomitant]

REACTIONS (3)
  - Deep vein thrombosis [None]
  - Deep vein thrombosis [None]
  - Pulmonary embolism [Recovered/Resolved]
